FAERS Safety Report 17569342 (Version 1)
Quarter: 2020Q1

REPORT INFORMATION
  Report Type: Spontaneous
  Country: AR (occurrence: AR)
  Receive Date: 20200322
  Receipt Date: 20200322
  Transmission Date: 20200409
  Serious: Yes (Hospitalization)
  Sender: FDA-Public Use
  Company Number: AR-AMGEN-ARGSP2020045585

PATIENT
  Age: 55 Year
  Sex: Female

DRUGS (1)
  1. ENBREL [Suspect]
     Active Substance: ETANERCEPT
     Indication: RHEUMATOID ARTHRITIS
     Dosage: 50 MILLIGRAM, QWK
     Route: 065
     Dates: start: 20120101, end: 20191008

REACTIONS (6)
  - Feeling abnormal [Unknown]
  - Gait inability [Unknown]
  - Peripheral swelling [Unknown]
  - Malaise [Unknown]
  - Joint range of motion decreased [Unknown]
  - Limb discomfort [Unknown]
